FAERS Safety Report 4395199-X (Version None)
Quarter: 2004Q3

REPORT INFORMATION
  Report Type: 
  Country: None (occurrence: None)
  Receive Date: 20040706
  Receipt Date: 20040621
  Transmission Date: 20050211
  Serious: Yes (Death, Other)
  Sender: FDA-Public Use
  Company Number: GB-2004-027334

PATIENT
  Sex: 0

DRUGS (1)
  1. REFLUDAN [Suspect]

REACTIONS (2)
  - EXSANGUINATION [None]
  - RENAL IMPAIRMENT [None]
